FAERS Safety Report 16487813 (Version 1)
Quarter: 2019Q3

REPORT INFORMATION
  Report Type: Spontaneous
  Country: US (occurrence: US)
  Receive Date: 20190626
  Receipt Date: 20190626
  Transmission Date: 20191004
  Serious: Yes (Other)
  Sender: FDA-Public Use
  Company Number: None

PATIENT
  Age: 70 Year
  Sex: Female
  Weight: 60.75 kg

DRUGS (1)
  1. LIVALO [Suspect]
     Active Substance: PITAVASTATIN CALCIUM
     Indication: LOW DENSITY LIPOPROTEIN ABNORMAL
     Dosage: ?          QUANTITY:.5 TABLET(S);OTHER FREQUENCY:ON MONDAY AND FRID;?
     Route: 048
     Dates: start: 20190607, end: 20190624

REACTIONS (5)
  - Arthralgia [None]
  - Pain in extremity [None]
  - Muscle contractions involuntary [None]
  - Muscle spasms [None]
  - Middle insomnia [None]

NARRATIVE: CASE EVENT DATE: 20190624
